FAERS Safety Report 9154486 (Version 1)
Quarter: 2013Q1

REPORT INFORMATION
  Report Type: Spontaneous
  Country: US (occurrence: US)
  Receive Date: 20130311
  Receipt Date: 20130311
  Transmission Date: 20140127
  Serious: No
  Sender: FDA-Public Use
  Company Number: US-ABBOTT-12P-163-1015532-00

PATIENT
  Age: 49 Year
  Sex: Female
  Weight: 69.46 kg

DRUGS (1)
  1. LUPRON DEPOT [Suspect]
     Indication: BREAST CANCER
     Dates: start: 20120625

REACTIONS (1)
  - Off label use [Unknown]
